FAERS Safety Report 10686164 (Version 1)
Quarter: 2014Q4

REPORT INFORMATION
  Report Type: Spontaneous
  Country: CH (occurrence: CH)
  Receive Date: 20141231
  Receipt Date: 20141231
  Transmission Date: 20150529
  Serious: Yes (Hospitalization)
  Sender: FDA-Public Use
  Company Number: CH-BAYER-2014-191036

PATIENT
  Age: 70 Year
  Sex: Male

DRUGS (11)
  1. LIBRAX [Concomitant]
     Active Substance: CHLORDIAZEPOXIDE HYDROCHLORIDE\CLIDINIUM BROMIDE
  2. ALLOPUR [Concomitant]
     Active Substance: ALLOPURINOL
  3. TEMESTA [Concomitant]
     Active Substance: LORAZEPAM
  4. PANTOPRAZOLE [Concomitant]
     Active Substance: PANTOPRAZOLE SODIUM
  5. ENATEC [Concomitant]
     Active Substance: ENALAPRIL MALEATE
  6. SINTROM [Suspect]
     Active Substance: ACENOCOUMAROL
     Indication: PULMONARY EMBOLISM
     Dosage: UNK
     Route: 048
     Dates: end: 20141214
  7. XENALON [Concomitant]
  8. ASPIRIN CARDIO [Suspect]
     Active Substance: ASPIRIN
     Dosage: 100 MG, QD
     Route: 048
     Dates: end: 20141214
  9. SEROQUEL [Concomitant]
     Active Substance: QUETIAPINE FUMARATE
  10. PRAVASTATIN [Concomitant]
     Active Substance: PRAVASTATIN\PRAVASTATIN SODIUM
  11. TOREM [Concomitant]
     Active Substance: TORSEMIDE

REACTIONS (5)
  - Troponin increased [Recovered/Resolved]
  - Coagulation time prolonged [Unknown]
  - Melaena [Recovered/Resolved]
  - Haemorrhagic anaemia [Recovering/Resolving]
  - Gastrointestinal haemorrhage [Recovered/Resolved]

NARRATIVE: CASE EVENT DATE: 201412
